FAERS Safety Report 4925833-4 (Version None)
Quarter: 2006Q1

REPORT INFORMATION
  Report Type: 
  Country: None (occurrence: None)
  Receive Date: 20060228
  Receipt Date: 20050329
  Transmission Date: 20060701
  Serious: No
  Sender: FDA-Public Use
  Company Number: US-GLAXOSMITHKLINE-A0551738A

PATIENT
  Age: 21 Year
  Sex: Male

DRUGS (3)
  1. LAMICTAL [Suspect]
     Indication: BIPOLAR DISORDER
     Dosage: 200MG TWICE PER DAY
     Route: 048
     Dates: start: 20041208
  2. SEROQUEL [Concomitant]
  3. ALLEGRA [Concomitant]

REACTIONS (3)
  - ASTHENOPIA [None]
  - DRY EYE [None]
  - EYE IRRITATION [None]
